FAERS Safety Report 6668593-1 (Version None)
Quarter: 2010Q2

REPORT INFORMATION
  Report Type: 
  Country: None (occurrence: None)
  Receive Date: 20100406
  Receipt Date: 20100331
  Transmission Date: 20101027
  Serious: Yes (Life-Threatening)
  Sender: FDA-Public Use
  Company Number: US-SANOFI-AVENTIS-2010SA014847

PATIENT
  Age: 61 Year
  Sex: Female
  Weight: 147 kg

DRUGS (8)
  1. LOVENOX [Suspect]
     Indication: PROPHYLAXIS
     Route: 065
     Dates: start: 20100201, end: 20100201
  2. EFFEXOR [Concomitant]
     Indication: DEPRESSION
  3. LIBRIUM [Concomitant]
     Indication: DEPRESSION
     Dosage: 1 TO 2 A DAY
  4. LIBRIUM [Concomitant]
     Indication: BIPOLAR DISORDER
     Dosage: 1 TO 2 A DAY
  5. BUMETANIDE [Concomitant]
     Indication: ANXIETY
  6. TRAMADOL HCL [Concomitant]
     Indication: PAIN
  7. BUDESONIDE/FORMOTEROL [Concomitant]
     Indication: ASTHMA
     Dosage: 1 TO 2 PUFFS
  8. OMEPRAZOLE [Concomitant]

REACTIONS (3)
  - DISSEMINATED INTRAVASCULAR COAGULATION [None]
  - HYPOTENSION [None]
  - POST PROCEDURAL HAEMORRHAGE [None]
